FAERS Safety Report 14223543 (Version 2)
Quarter: 2018Q1

REPORT INFORMATION
  Report Type: Spontaneous
  Country: DE (occurrence: DE)
  Receive Date: 20171124
  Receipt Date: 20180116
  Transmission Date: 20180508
  Serious: Yes (Other)
  Sender: FDA-Public Use
  Company Number: PHHY2017DE171323

PATIENT
  Age: 40 Year
  Sex: Female
  Weight: 66 kg

DRUGS (2)
  1. BERLOSIN [Concomitant]
     Active Substance: METAMIZOLE
     Indication: HEADACHE
     Dosage: UNK UNK, PRN
     Route: 065
  2. COSENTYX [Suspect]
     Active Substance: SECUKINUMAB
     Indication: PSORIASIS
     Dosage: 300 MG, UNK
     Route: 065
     Dates: start: 20160919

REACTIONS (3)
  - Abscess sweat gland [Recovered/Resolved]
  - Folliculitis [Recovered/Resolved]
  - Abscess sweat gland [Recovered/Resolved]

NARRATIVE: CASE EVENT DATE: 201708
